FAERS Safety Report 4630296-2 (Version None)
Quarter: 2005Q2

REPORT INFORMATION
  Report Type: 
  Country: None (occurrence: None)
  Receive Date: 20050408
  Receipt Date: 20050331
  Transmission Date: 20051028
  Serious: Yes (Hospitalization)
  Sender: FDA-Public Use
  Company Number: 200510860EU

PATIENT
  Age: 72 Year
  Sex: Male

DRUGS (11)
  1. LASIX [Suspect]
     Indication: ESSENTIAL HYPERTENSION
     Route: 048
     Dates: end: 20050310
  2. LASIX [Suspect]
     Indication: EXTRAPYRAMIDAL DISORDER
     Route: 048
     Dates: end: 20050310
  3. RISPERDAL [Suspect]
     Indication: SCHIZOAFFECTIVE DISORDER
     Route: 048
     Dates: end: 20050310
  4. GLUTRIL [Suspect]
     Indication: DIABETES MELLITUS NON-INSULIN-DEPENDENT
     Route: 048
     Dates: end: 20050310
  5. AKINETON [Suspect]
     Indication: EXTRAPYRAMIDAL DISORDER
     Dates: end: 20050310
  6. AKINETON [Suspect]
     Indication: MOVEMENT DISORDER
     Dates: end: 20050310
  7. COSAAR PLUS [Suspect]
     Indication: ESSENTIAL HYPERTENSION
     Dates: end: 20050310
  8. ORFIRIL [Concomitant]
     Indication: EPILEPSY
     Route: 048
  9. TEMESTA [Concomitant]
     Route: 048
  10. ASPIRIN [Concomitant]
     Route: 048
  11. GLUCOPHAGE [Concomitant]
     Route: 048

REACTIONS (11)
  - ABASIA [None]
  - CHILLS [None]
  - EXTRAPYRAMIDAL DISORDER [None]
  - FATIGUE [None]
  - GENERAL PHYSICAL HEALTH DETERIORATION [None]
  - HYPOTENSION [None]
  - MUSCLE RIGIDITY [None]
  - NEUROLEPTIC MALIGNANT SYNDROME [None]
  - PYREXIA [None]
  - TACHYCARDIA [None]
  - URINARY INCONTINENCE [None]
